FAERS Safety Report 9502150 (Version 1)
Quarter: 2013Q3

REPORT INFORMATION
  Report Type: Spontaneous
  Country: US (occurrence: US)
  Receive Date: 20130905
  Receipt Date: 20130905
  Transmission Date: 20140515
  Serious: Yes (Hospitalization, Other)
  Sender: FDA-Public Use
  Company Number: US-ABBOTT-13P-163-1141084-00

PATIENT
  Age: 12 Year
  Sex: Male
  Weight: 69.92 kg

DRUGS (13)
  1. DEPAKOTE [Suspect]
     Route: 048
     Dates: start: 20130621
  2. MENINGOCOCCAL GROUP B [Suspect]
     Indication: PROPHYLAXIS
     Dates: start: 20130409, end: 20130409
  3. MENINGOCOCCAL GROUP B [Suspect]
     Dates: start: 20121009, end: 20121009
  4. DESYREL [Suspect]
     Indication: AFFECTIVE DISORDER
     Dosage: NIGHTLY
     Route: 048
     Dates: start: 20130108, end: 20130617
  5. DESYREL [Suspect]
     Dosage: NIGHTLY
     Route: 048
     Dates: start: 20130617
  6. CATAPRES [Suspect]
     Indication: AFFECTIVE DISORDER
     Dosage: NIGHTLY
     Route: 048
     Dates: start: 20120301
  7. VYVANSE [Suspect]
     Indication: AFFECTIVE DISORDER
     Dosage: EVERY MORNING
     Route: 048
     Dates: start: 20130331
  8. VYVANSE [Suspect]
     Dosage: AT NOON
     Route: 048
     Dates: start: 20130402
  9. PROZAC [Suspect]
     Indication: AFFECTIVE DISORDER
     Route: 048
     Dates: start: 20121108
  10. THORAZINE [Suspect]
     Indication: AFFECTIVE DISORDER
     Route: 048
     Dates: start: 20130326
  11. THORAZINE [Suspect]
     Indication: AGGRESSION
     Route: 048
     Dates: start: 20130617
  12. DEPAKOTE [Suspect]
     Indication: AFFECTIVE DISORDER
     Route: 048
     Dates: start: 20120301
  13. DEPAKOTE [Suspect]
     Route: 048
     Dates: start: 20130617

REACTIONS (3)
  - Treatment noncompliance [Unknown]
  - Aggression [Recovered/Resolved]
  - Affective disorder [Unknown]
